FAERS Safety Report 9106747 (Version 1)
Quarter: 2013Q1

REPORT INFORMATION
  Report Type: Spontaneous
  Country: BR (occurrence: BR)
  Receive Date: 20130221
  Receipt Date: 20130221
  Transmission Date: 20140127
  Serious: Yes (Hospitalization, Other)
  Sender: FDA-Public Use
  Company Number: BR-009507513-1302BRA009029

PATIENT
  Sex: Female

DRUGS (1)
  1. JANUVIA [Suspect]
     Dosage: 50 MG, UNKNOWN
     Route: 048
     Dates: start: 2011, end: 20130216

REACTIONS (2)
  - Myocardial infarction [Recovered/Resolved with Sequelae]
  - Catheterisation cardiac [Recovered/Resolved]
